FAERS Safety Report 23932839 (Version 1)
Quarter: 2024Q2

REPORT INFORMATION
  Report Type: Spontaneous
  Country: US (occurrence: None)
  Receive Date: 20240601
  Receipt Date: 20240601
  Transmission Date: 20240716
  Serious: Yes (Hospitalization)
  Sender: FDA-Public Use
  Company Number: None

PATIENT
  Sex: Male

DRUGS (2)
  1. ADVATE [Suspect]
     Active Substance: ANTIHEMOPHILIC FACTOR, HUMAN RECOMBINANT
     Indication: Factor VIII deficiency
     Dosage: FREQUENCY: INFUSE 3000 UNITS (2700-3300) SLOW IV PUSH EVERY OTHER WEEK AND AS NEEDED FOR BLEEDING.?
     Route: 042
     Dates: start: 201810
  2. HEMLIBRA [Concomitant]

REACTIONS (1)
  - Haematological infection [None]
